FAERS Safety Report 13425955 (Version 1)
Quarter: 2017Q2

REPORT INFORMATION
  Report Type: Spontaneous
  Country: US (occurrence: US)
  Receive Date: 20170410
  Receipt Date: 20170410
  Transmission Date: 20170830
  Serious: Yes (Hospitalization)
  Sender: FDA-Public Use
  Company Number: None

PATIENT
  Age: 76 Year
  Sex: Male
  Weight: 68 kg

DRUGS (1)
  1. BLEOMYCIN [Suspect]
     Active Substance: BLEOMYCIN SULFATE
     Indication: HODGKIN^S DISEASE
     Dosage: 20 UNITS ONCE IV
     Route: 042
     Dates: start: 20161118, end: 20170307

REACTIONS (2)
  - Pulmonary fibrosis [None]
  - Respiratory depression [None]

NARRATIVE: CASE EVENT DATE: 20170319
